FAERS Safety Report 7679489-0 (Version None)
Quarter: 2011Q3

REPORT INFORMATION
  Report Type: 
  Country: None (occurrence: None)
  Receive Date: 20110812
  Receipt Date: 20110812
  Transmission Date: 20111222
  Serious: Yes (Other)
  Sender: FDA-Public Use
  Company Number: None

PATIENT
  Age: 70 Year
  Sex: Female
  Weight: 76.203 kg

DRUGS (2)
  1. LYRICA [Suspect]
     Indication: OSTEOARTHRITIS
     Dosage: 300MG
     Route: 048
     Dates: start: 20110808, end: 20110808
  2. LYRICA [Suspect]
     Indication: HIP ARTHROPLASTY
     Dosage: 300MG
     Route: 048
     Dates: start: 20110808, end: 20110808

REACTIONS (1)
  - SOMNOLENCE [None]
